FAERS Safety Report 24199418 (Version 1)
Quarter: 2024Q3

REPORT INFORMATION
  Report Type: Spontaneous
  Country: IT (occurrence: IT)
  Receive Date: 20240812
  Receipt Date: 20240812
  Transmission Date: 20241017
  Serious: Yes (Life-Threatening, Hospitalization)
  Sender: MYLAN
  Company Number: IT-MYLANLABS-2024M1072742

PATIENT
  Age: 2 Year
  Sex: Male

DRUGS (19)
  1. ACETAMINOPHEN [Suspect]
     Active Substance: ACETAMINOPHEN
     Indication: Anaphylaxis prophylaxis
     Dosage: UNK
     Route: 048
  2. CETIRIZINE [Suspect]
     Active Substance: CETIRIZINE HYDROCHLORIDE
     Indication: Anaphylactic reaction
     Dosage: UNK, THERAPY CONTINUED
     Route: 048
  3. PREDNISONE [Suspect]
     Active Substance: PREDNISONE
     Indication: Anaphylactic reaction
     Dosage: UNK
     Route: 048
  4. BETAMETHASONE [Suspect]
     Active Substance: BETAMETHASONE\BETAMETHASONE DIPROPIONATE
     Indication: Anaphylaxis prophylaxis
     Dosage: 0.1 MILLIGRAM/KILOGRAM
     Route: 065
  5. BETAMETHASONE [Suspect]
     Active Substance: BETAMETHASONE\BETAMETHASONE DIPROPIONATE
     Indication: Anaphylactic reaction
     Dosage: 0.2 MILLIGRAM/KILOGRAM, THERAPY CONTINUED
     Route: 048
  6. OLIPUDASE ALFA [Suspect]
     Active Substance: OLIPUDASE ALFA
     Indication: Niemann-Pick disease
     Dosage: 0.03 MILLIGRAM/KILOGRAM, BIWEEKLY
     Route: 042
  7. OLIPUDASE ALFA [Suspect]
     Active Substance: OLIPUDASE ALFA
     Dosage: 1 MILLIGRAM/KILOGRAM, BIWEEKLY
     Route: 042
  8. OLIPUDASE ALFA [Suspect]
     Active Substance: OLIPUDASE ALFA
     Dosage: 1.5 MILLIGRAM/KILOGRAM, BIWEEKLY
     Route: 042
  9. OLIPUDASE ALFA [Suspect]
     Active Substance: OLIPUDASE ALFA
     Dosage: 3 MILLIGRAM/KILOGRAM, BIWEEKLY
     Route: 042
  10. OLIPUDASE ALFA [Suspect]
     Active Substance: OLIPUDASE ALFA
     Dosage: 0.3 MILLIGRAM/KILOGRAM, BIWEEKLY
     Route: 042
  11. OLIPUDASE ALFA [Suspect]
     Active Substance: OLIPUDASE ALFA
     Dosage: 0.1 MILLIGRAM/KILOGRAM, BIWEEKLY
     Route: 042
  12. OLIPUDASE ALFA [Suspect]
     Active Substance: OLIPUDASE ALFA
     Dosage: 0.6 MILLIGRAM/KILOGRAM, BIWEEKLY
     Route: 042
  13. ALBUTEROL [Suspect]
     Active Substance: ALBUTEROL
     Indication: Anaphylactic reaction
     Dosage: UNK
     Route: 055
  14. METHYLPREDNISOLONE [Suspect]
     Active Substance: METHYLPREDNISOLONE
     Indication: Anaphylaxis prophylaxis
     Dosage: 2 MILLIGRAM/KILOGRAM, QD
     Route: 042
  15. METHYLPREDNISOLONE [Suspect]
     Active Substance: METHYLPREDNISOLONE
     Indication: Anaphylactic reaction
  16. METHYLPREDNISOLONE [Suspect]
     Active Substance: METHYLPREDNISOLONE
     Indication: Anaphylaxis prophylaxis
     Dosage: UNK
     Route: 065
  17. METHYLPREDNISOLONE [Suspect]
     Active Substance: METHYLPREDNISOLONE
     Indication: Anaphylactic reaction
  18. EPINEPHRINE [Concomitant]
     Active Substance: EPINEPHRINE
     Indication: Anaphylactic reaction
     Dosage: 0.01 MILLIGRAM/KILOGRAM
     Route: 030
  19. HYDROCORTISONE [Concomitant]
     Active Substance: HYDROCORTISONE\HYDROCORTISONE ACETATE
     Indication: Anaphylactic reaction
     Dosage: UNK
     Route: 042

REACTIONS (1)
  - Drug ineffective [Unknown]
